FAERS Safety Report 21469660 (Version 1)
Quarter: 2022Q4

REPORT INFORMATION
  Report Type: Spontaneous
  Country: US (occurrence: US)
  Receive Date: 20221018
  Receipt Date: 20221018
  Transmission Date: 20230113
  Serious: No
  Sender: FDA-Public Use
  Company Number: US-ADAMAS PHARMA, LLC-2021ADA02112

PATIENT
  Age: 70 Year
  Sex: Female

DRUGS (11)
  1. GOCOVRI [Suspect]
     Active Substance: AMANTADINE
     Indication: Dyskinesia
     Dosage: 137 MG, 1X/DAY AT BEDTIME
     Route: 048
     Dates: start: 20210823
  2. AMANTADINE HYDROCHLORIDE [Suspect]
     Active Substance: AMANTADINE HYDROCHLORIDE
  3. NUPLAZID [Suspect]
     Active Substance: PIMAVANSERIN TARTRATE
     Indication: Parkinson^s disease
     Dosage: 34 MG, 1X/DAY
     Route: 048
     Dates: start: 20210430
  4. NUPLAZID [Suspect]
     Active Substance: PIMAVANSERIN TARTRATE
     Dosage: 34 MG, 1X/DAY
     Route: 048
     Dates: start: 20210812
  5. APOKYN [Concomitant]
     Active Substance: APOMORPHINE HYDROCHLORIDE
  6. CARBIDOPA\LEVODOPA [Concomitant]
     Active Substance: CARBIDOPA\LEVODOPA
  7. ENTACAPONE [Concomitant]
     Active Substance: ENTACAPONE
  8. FERROUS SULFATE [Concomitant]
     Active Substance: FERROUS SULFATE
  9. RASAGILINE [Concomitant]
     Active Substance: RASAGILINE
  10. SEROQUEL [Concomitant]
     Active Substance: QUETIAPINE FUMARATE
  11. ZONISAMIDE [Concomitant]
     Active Substance: ZONISAMIDE

REACTIONS (5)
  - Feeling abnormal [Unknown]
  - Confusional state [Unknown]
  - Insomnia [Not Recovered/Not Resolved]
  - Somnolence [Unknown]
  - Duplicate therapy error [Unknown]

NARRATIVE: CASE EVENT DATE: 20210823
